FAERS Safety Report 4824558-3 (Version None)
Quarter: 2005Q4

REPORT INFORMATION
  Report Type: 
  Country: None (occurrence: None)
  Receive Date: 20051108
  Receipt Date: 20051024
  Transmission Date: 20060501
  Serious: Yes (Hospitalization, Other)
  Sender: FDA-Public Use
  Company Number: DE_031012281

PATIENT
  Age: 64 Year
  Sex: Male
  Weight: 90 kg

DRUGS (4)
  1. GEMZAR [Suspect]
     Indication: PERITONEAL MESOTHELIOMA MALIGNANT
     Dates: start: 20001201, end: 20031001
  2. ACE-INHIBITOR [Concomitant]
  3. ALLOPURINOL [Concomitant]
  4. ATACAND HCT [Concomitant]

REACTIONS (8)
  - ALVEOLITIS [None]
  - CATHETER RELATED COMPLICATION [None]
  - INTERVERTEBRAL DISC PROTRUSION [None]
  - LEUKOPENIA [None]
  - MALIGNANT NEOPLASM PROGRESSION [None]
  - PERITONEAL MESOTHELIOMA MALIGNANT [None]
  - PNEUMONITIS [None]
  - STAPHYLOCOCCAL INFECTION [None]
